FAERS Safety Report 17489902 (Version 1)
Quarter: 2020Q1

REPORT INFORMATION
  Report Type: Spontaneous
  Country: US (occurrence: US)
  Receive Date: 20200303
  Receipt Date: 20200303
  Transmission Date: 20200409
  Serious: No
  Sender: FDA-Public Use
  Company Number: US-AKORN PHARMACEUTICALS-2019AKN01681

PATIENT
  Age: 20 Year
  Sex: Female
  Weight: 52.15 kg

DRUGS (5)
  1. MYORISAN [Suspect]
     Active Substance: ISOTRETINOIN
     Indication: ACNE
     Dosage: 40 MG, 1X/DAY
     Dates: start: 20190227, end: 201903
  2. MYORISAN [Suspect]
     Active Substance: ISOTRETINOIN
     Dosage: 40 MG, 2X/DAY
     Dates: start: 201903, end: 20190730
  3. ANTIANXIETY (UNSPECIFIED) [Concomitant]
  4. ANTIDEPRESSANT (UNSPECIFIED) [Concomitant]
  5. YAZ [Concomitant]
     Active Substance: DROSPIRENONE\ETHINYL ESTRADIOL

REACTIONS (4)
  - Dermatitis [Recovering/Resolving]
  - Off label use [Recovered/Resolved]
  - Alopecia [Unknown]
  - Acne [Unknown]

NARRATIVE: CASE EVENT DATE: 2019
